FAERS Safety Report 6796258-4 (Version None)
Quarter: 2010Q2

REPORT INFORMATION
  Report Type: 
  Country: None (occurrence: None)
  Receive Date: 20100625
  Receipt Date: 20100610
  Transmission Date: 20101027
  Serious: Yes (Hospitalization)
  Sender: FDA-Public Use
  Company Number: GB-AMGEN-US393453

PATIENT
  Sex: Female
  Weight: 100 kg

DRUGS (9)
  1. ENBREL [Suspect]
     Indication: RHEUMATOID ARTHRITIS
     Route: 058
     Dates: start: 20091006, end: 20100201
  2. BONIVA [Concomitant]
     Dosage: UNKNOWN
  3. SOLPADOL [Concomitant]
     Dosage: 2 TABLETS, FREQUENCY UNSPECIFIED
     Route: 048
  4. CALCEOS [Concomitant]
     Dosage: UNKNOWN
  5. THYROXINE I 125 [Concomitant]
     Dosage: 100MCG, EVERY DAY
     Route: 048
  6. OMEPRAZOLE [Concomitant]
     Route: 048
  7. NAPROXEN [Concomitant]
     Route: 048
  8. PREDNISOLONE [Concomitant]
     Dosage: UNKNOWN
  9. AMITRIPTYLINE [Concomitant]
     Route: 048

REACTIONS (1)
  - COLITIS [None]
